FAERS Safety Report 20503770 (Version 1)
Quarter: 2022Q1

REPORT INFORMATION
  Report Type: Report from Study
  Country: IT (occurrence: None)
  Receive Date: 20220222
  Receipt Date: 20220222
  Transmission Date: 20220423
  Serious: Yes (Other)
  Sender: FDA-Public Use
  Company Number: IT-Merck Healthcare KGaA-9300242

PATIENT
  Age: 53 Year

DRUGS (2)
  1. EUTHYROX [Suspect]
     Active Substance: LEVOTHYROXINE SODIUM
     Indication: Product used for unknown indication
     Dosage: 1CP
  2. VENLAFAXINE HYDROCHLORIDE [Suspect]
     Active Substance: VENLAFAXINE HYDROCHLORIDE
     Indication: Product used for unknown indication
     Dosage: 37 (UNIT UNSPECIFIED), 1CP.

REACTIONS (5)
  - Electrocardiogram repolarisation abnormality [Unknown]
  - Mitral valve incompetence [Unknown]
  - Atrial enlargement [Unknown]
  - Cardiac murmur [Unknown]
  - Right ventricular enlargement [Unknown]
